FAERS Safety Report 5677706-X (Version None)
Quarter: 2008Q1

REPORT INFORMATION
  Report Type: 
  Country: None (occurrence: None)
  Receive Date: 20080324
  Receipt Date: 20080320
  Transmission Date: 20080703
  Serious: Yes (Hospitalization)
  Sender: FDA-Public Use
  Company Number: US-BOEHRINGER INGELHEIM GMBH, GERMANY-2008-BP-04449BP

PATIENT
  Sex: Male

DRUGS (4)
  1. AGGRENOX [Suspect]
     Indication: TRANSIENT ISCHAEMIC ATTACK
     Route: 048
     Dates: start: 20071001
  2. NAMENDA [Concomitant]
     Indication: MEMORY IMPAIRMENT
  3. LASIX [Concomitant]
  4. POTASSIUM CHLORIDE [Concomitant]

REACTIONS (1)
  - PNEUMONIA BACTERIAL [None]
